FAERS Safety Report 25215290 (Version 3)
Quarter: 2025Q2

REPORT INFORMATION
  Report Type: Report from Study
  Country: CA (occurrence: CA)
  Receive Date: 20250418
  Receipt Date: 20250423
  Transmission Date: 20250717
  Serious: Yes (Other)
  Sender: ABBVIE
  Company Number: CA-ABBVIE-6239636

PATIENT
  Age: 60 Year
  Sex: Female

DRUGS (1)
  1. SKYRIZI [Suspect]
     Active Substance: RISANKIZUMAB-RZAA
     Indication: Psoriasis
     Route: 058
     Dates: start: 20190310

REACTIONS (3)
  - Ankle operation [Unknown]
  - Postoperative wound infection [Recovering/Resolving]
  - Labyrinthitis [Unknown]

NARRATIVE: CASE EVENT DATE: 20250101
